FAERS Safety Report 9011638 (Version 3)
Quarter: 2013Q4

REPORT INFORMATION
  Report Type: Spontaneous
  Country: US (occurrence: US)
  Receive Date: 20130111
  Receipt Date: 20131014
  Transmission Date: 20140711
  Serious: Yes (Other)
  Sender: FDA-Public Use
  Company Number: US-PFIZER INC-2013009777

PATIENT
  Age: 74 Year
  Sex: Male
  Weight: 55.33 kg

DRUGS (12)
  1. LIPITOR [Suspect]
     Indication: BLOOD CHOLESTEROL INCREASED
     Dosage: 40 MG, UNK
  2. CELEBREX [Suspect]
     Indication: ANKYLOSING SPONDYLITIS
     Dosage: UNK
  3. PROCARDIA [Suspect]
     Indication: HYPERTENSION
     Dosage: UNK
  4. DILANTIN [Suspect]
     Indication: CONVULSION
     Dosage: 200 MG, 1X/DAY
  5. CARDURA [Suspect]
     Dosage: UNK
  6. DEPO-PROVERA [Suspect]
     Dosage: UNK
  7. FOLIC ACID [Concomitant]
     Dosage: 1 MG, UNK
  8. ALENDRONATE SODIUM [Concomitant]
     Dosage: UNK
  9. CALCIUM/VITAMIN D [Concomitant]
     Dosage: UNK
  10. METHOTREXATE [Concomitant]
     Dosage: 2.5 MG, UNK
  11. HUMIRA [Concomitant]
     Dosage: UNK
  12. PRILOSEC [Concomitant]
     Dosage: UNK

REACTIONS (3)
  - Aortic disorder [Unknown]
  - Cardiac disorder [Unknown]
  - Memory impairment [Unknown]
